FAERS Safety Report 8579978-0 (Version None)
Quarter: 2012Q3

REPORT INFORMATION
  Report Type: 
  Country: None (occurrence: None)
  Receive Date: 20120808
  Receipt Date: 20120806
  Transmission Date: 20120928
  Serious: No
  Sender: FDA-Public Use
  Company Number: US-PFIZER INC-2012135839

PATIENT
  Sex: Male

DRUGS (1)
  1. EFFEXOR XR [Suspect]
     Dosage: UNK

REACTIONS (5)
  - WITHDRAWAL SYNDROME [None]
  - NIGHTMARE [None]
  - COLD SWEAT [None]
  - FEELING OF DESPAIR [None]
  - TREMOR [None]
